FAERS Safety Report 19053922 (Version 1)
Quarter: 2021Q1

REPORT INFORMATION
  Report Type: Spontaneous
  Country: FR (occurrence: FR)
  Receive Date: 20210324
  Receipt Date: 20210324
  Transmission Date: 20210420
  Serious: Yes (Other)
  Sender: FDA-Public Use
  Company Number: FR-TEVA-2021-FR-1893056

PATIENT
  Age: 64 Year
  Sex: Male
  Weight: 86 kg

DRUGS (6)
  1. TECENTRIQ [Suspect]
     Active Substance: ATEZOLIZUMAB
     Indication: SQUAMOUS CELL CARCINOMA OF LUNG
     Dosage: 1200 MG
     Route: 042
     Dates: start: 20200820, end: 20210121
  2. ALPRAZOLAM. [Suspect]
     Active Substance: ALPRAZOLAM
     Indication: PRODUCT USED FOR UNKNOWN INDICATION
     Dosage: 0.5 MG
     Route: 048
     Dates: start: 20200603
  3. SPIRIVA RESPIMAT [Suspect]
     Active Substance: TIOTROPIUM BROMIDE
     Indication: INCREASED BRONCHIAL SECRETION
     Dosage: UNIT DOSE :2 DOSAGE FORMS ,2 PUFFS ONCE A DAY
     Route: 055
     Dates: start: 20201120
  4. INNOVAIR [Suspect]
     Active Substance: BECLOMETHASONE DIPROPIONATE\FORMOTEROL
     Indication: INCREASED BRONCHIAL SECRETION
     Dosage: UNIT DOSE :2 DOSAGE FORMS ,2 PUFFS PER DAY
     Route: 055
     Dates: start: 20201120
  5. PRAZEPAM [Suspect]
     Active Substance: PRAZEPAM
     Indication: PRODUCT USED FOR UNKNOWN INDICATION
     Dosage: 10 MG
     Route: 048
     Dates: start: 20200513
  6. NICOPASS [Suspect]
     Active Substance: NICOTINE
     Indication: TOBACCO POISONING
     Dosage: 1 DOSAGE FORMS
     Route: 048
     Dates: start: 20200304

REACTIONS (1)
  - Polymyalgia rheumatica [Not Recovered/Not Resolved]

NARRATIVE: CASE EVENT DATE: 202101
